FAERS Safety Report 23980964 (Version 1)
Quarter: 2024Q2

REPORT INFORMATION
  Report Type: Report from Study
  Country: US (occurrence: US)
  Receive Date: 20240617
  Receipt Date: 20240617
  Transmission Date: 20240716
  Serious: Yes (Death, Hospitalization, Other)
  Sender: FDA-Public Use
  Company Number: US-INSMED-2023-02583-USAA

PATIENT
  Sex: Male

DRUGS (8)
  1. ARIKAYCE [Suspect]
     Active Substance: AMIKACIN
     Indication: Mycobacterial infection
     Dosage: 590 MILLIGRAM, QD
     Route: 055
     Dates: start: 202304, end: 202306
  2. ARIKAYCE [Suspect]
     Active Substance: AMIKACIN
     Dosage: 590 MILLIGRAM, QOD
     Route: 055
     Dates: start: 2023, end: 2023
  3. ARIKAYCE [Suspect]
     Active Substance: AMIKACIN
     Dosage: 590 MILLIGRAM, QD
     Route: 055
     Dates: start: 202310, end: 2023
  4. ARIKAYCE [Suspect]
     Active Substance: AMIKACIN
     Dosage: 590 MILLIGRAM, QOD
     Route: 055
     Dates: start: 2023, end: 2023
  5. ARIKAYCE [Suspect]
     Active Substance: AMIKACIN
     Dosage: 590 MILLIGRAM, QD
     Route: 055
     Dates: start: 202312
  6. ARIKAYCE [Suspect]
     Active Substance: AMIKACIN
     Dosage: 590 MILLIGRAM, TIW
     Route: 055
  7. ARIKAYCE [Suspect]
     Active Substance: AMIKACIN
     Dosage: 590 MILLIGRAM, TIW
     Route: 055
     Dates: start: 20240321, end: 202404
  8. ARIKAYCE [Suspect]
     Active Substance: AMIKACIN
     Dosage: 590 MILLIGRAM, QD
     Route: 055
     Dates: start: 202404

REACTIONS (9)
  - Death [Fatal]
  - Aspergillus infection [Recovered/Resolved]
  - Haemoptysis [Recovered/Resolved]
  - Haemoptysis [Unknown]
  - Abdominal discomfort [Not Recovered/Not Resolved]
  - Nausea [Unknown]
  - Dyspnoea [Recovering/Resolving]
  - Off label use [Unknown]
  - Therapy interrupted [Unknown]

NARRATIVE: CASE EVENT DATE: 20230101
